FAERS Safety Report 7626367-9 (Version None)
Quarter: 2011Q3

REPORT INFORMATION
  Report Type: 
  Country: None (occurrence: None)
  Receive Date: 20110721
  Receipt Date: 20110718
  Transmission Date: 20111222
  Serious: Yes (Death, Hospitalization)
  Sender: FDA-Public Use
  Company Number: PHHY2011US64790

PATIENT
  Age: 61 Year
  Sex: Male

DRUGS (6)
  1. NEORAL [Suspect]
     Indication: LUNG TRANSPLANT
     Dosage: UNK UKN, UNK
  2. PREDNISONE [Concomitant]
     Indication: PROPHYLAXIS AGAINST TRANSPLANT REJECTION
     Dosage: 10 MG
     Route: 048
     Dates: start: 20060101
  3. AZATHIOPRINE [Concomitant]
     Indication: PROPHYLAXIS AGAINST TRANSPLANT REJECTION
     Dosage: 50 MG, UNK
  4. MYCOPHENOLATE MOFETIL [Concomitant]
     Dosage: UNK UKN, UNK
  5. METHYLPREDNISOLONE [Concomitant]
     Indication: PROPHYLAXIS AGAINST TRANSPLANT REJECTION
     Dosage: UNK UKN, UNK
  6. TACROLIMUS [Concomitant]
     Indication: PROPHYLAXIS AGAINST TRANSPLANT REJECTION
     Dosage: UNK UKN, UNK

REACTIONS (5)
  - BLINDNESS UNILATERAL [None]
  - DYSPHAGIA [None]
  - PROGRESSIVE MULTIFOCAL LEUKOENCEPHALOPATHY [None]
  - HEMIPLEGIA [None]
  - SPEECH DISORDER [None]
